FAERS Safety Report 17531769 (Version 3)
Quarter: 2021Q3

REPORT INFORMATION
  Report Type: Spontaneous
  Country: CH (occurrence: CH)
  Receive Date: 20200311
  Receipt Date: 20210805
  Transmission Date: 20211014
  Serious: Yes (Hospitalization)
  Sender: FDA-Public Use
  Company Number: CH-ASTRAZENECA-2020SE35466

PATIENT
  Age: 1001 Month
  Sex: Female

DRUGS (13)
  1. NEXIUM [Concomitant]
     Active Substance: ESOMEPRAZOLE MAGNESIUM
     Dosage: UNKNOWN
     Dates: start: 20200207
  2. CO?DIOVAN [Concomitant]
     Active Substance: HYDROCHLOROTHIAZIDE\VALSARTAN
     Dates: end: 20200206
  3. JANUMET [Concomitant]
     Active Substance: METFORMIN HYDROCHLORIDE\SITAGLIPTIN PHOSPHATE
     Dates: end: 20200206
  4. VOLTAREN [Suspect]
     Active Substance: DICLOFENAC SODIUM
     Route: 048
     Dates: end: 20200206
  5. TEMESTA [Concomitant]
     Dates: end: 20200206
  6. PONSTAN [Suspect]
     Active Substance: MEFENAMIC ACID
     Route: 048
     Dates: end: 20200206
  7. CO?DAFALGAN [Concomitant]
     Active Substance: ACETAMINOPHEN\CODEINE PHOSPHATE
     Dates: end: 20200206
  8. EZETROL [Concomitant]
     Active Substance: EZETIMIBE
     Dates: end: 20200206
  9. CRESTOR [Suspect]
     Active Substance: ROSUVASTATIN CALCIUM
     Route: 048
     Dates: end: 20200206
  10. ADENURIC [Concomitant]
     Active Substance: FEBUXOSTAT
     Dates: end: 20200206
  11. JARDIANCE [Concomitant]
     Active Substance: EMPAGLIFLOZIN
     Dates: end: 20200206
  12. PARACETAMOL [Concomitant]
     Active Substance: ACETAMINOPHEN
     Dates: end: 20200206
  13. STILNOX [Concomitant]
     Active Substance: ZOLPIDEM TARTRATE
     Dosage: UNKNOWN

REACTIONS (3)
  - Acute kidney injury [Recovered/Resolved with Sequelae]
  - Hepatocellular injury [Recovered/Resolved]
  - Rhabdomyolysis [Recovered/Resolved]

NARRATIVE: CASE EVENT DATE: 202002
